FAERS Safety Report 6613414-6 (Version None)
Quarter: 2010Q1

REPORT INFORMATION
  Report Type: 
  Country: None (occurrence: None)
  Receive Date: 20100224
  Receipt Date: 20090827
  Transmission Date: 20100710
  Serious: No
  Sender: FDA-Public Use
  Company Number: 2009-00573

PATIENT
  Age: 55 Year
  Sex: Female
  Weight: 56.6996 kg

DRUGS (5)
  1. ZICAM COLD REMEDY GEL SWABS [Suspect]
     Dosage: SPORADIC - OFF/ON; SPRING 2009-06/16/2009
     Dates: end: 20090616
  2. PREDNISONE [Concomitant]
  3. NAPROSYN [Concomitant]
  4. PRILOSEC [Concomitant]
  5. ENBREL INJFECTIONS [Concomitant]

REACTIONS (1)
  - ANOSMIA [None]
